FAERS Safety Report 4408613-8 (Version None)
Quarter: 2004Q3

REPORT INFORMATION
  Report Type: 
  Country: None (occurrence: None)
  Receive Date: 20040723
  Receipt Date: 20040712
  Transmission Date: 20050211
  Serious: Yes (Hospitalization)
  Sender: FDA-Public Use
  Company Number: 2004-00400FE

PATIENT

DRUGS (1)
  1. PENTASA [Suspect]

REACTIONS (2)
  - ATRIOVENTRICULAR BLOCK [None]
  - CIRCULATORY COLLAPSE [None]
